FAERS Safety Report 7442190-2 (Version None)
Quarter: 2011Q2

REPORT INFORMATION
  Report Type: 
  Country: None (occurrence: None)
  Receive Date: 20110428
  Receipt Date: 20101229
  Transmission Date: 20111010
  Serious: Yes (Hospitalization, Other)
  Sender: FDA-Public Use
  Company Number: US-BAYER-201020603NA

PATIENT
  Age: 43 Year
  Sex: Female
  Weight: 88.435 kg

DRUGS (10)
  1. YAZ [Suspect]
     Indication: CONTRACEPTION
  2. LOESTRIN FE 1/20 [Concomitant]
     Indication: ANAEMIA
     Dosage: UNK
  3. IRON [IRON] [Concomitant]
  4. CELEXA [Concomitant]
  5. LOESTRIN FE 1/20 [Concomitant]
     Dosage: UNK
  6. LOESTRIN FE 1/20 [Concomitant]
     Dosage: UNK
  7. LOESTRIN FE 1/20 [Concomitant]
     Dosage: UNK
  8. YAZ [Suspect]
     Indication: PREMENSTRUAL SYNDROME
     Dosage: UNK
     Dates: start: 20090101, end: 20090701
  9. YAZ [Suspect]
     Indication: MENORRHAGIA
  10. PREVACID [Concomitant]
     Dosage: UNK
     Dates: start: 20091001

REACTIONS (6)
  - DEEP VEIN THROMBOSIS [None]
  - ANXIETY [None]
  - CHEST PAIN [None]
  - PULMONARY EMBOLISM [None]
  - DYSPNOEA [None]
  - PANIC ATTACK [None]
